FAERS Safety Report 18274137 (Version 4)
Quarter: 2021Q1

REPORT INFORMATION
  Report Type: Spontaneous
  Country: JP (occurrence: JP)
  Receive Date: 20200916
  Receipt Date: 20210324
  Transmission Date: 20210419
  Serious: Yes (Hospitalization, Other)
  Sender: FDA-Public Use
  Company Number: JP-BRISTOL-MYERS SQUIBB COMPANY-BMS-2020-075056

PATIENT
  Age: 67 Year
  Sex: Female
  Weight: 52.3 kg

DRUGS (7)
  1. ALLOID G [Concomitant]
     Active Substance: SODIUM ALGINATE
     Indication: PRODUCT USED FOR UNKNOWN INDICATION
     Dosage: 10 MILLILITER, Q6H
     Route: 048
     Dates: start: 20201001
  2. TEPRENONE [Concomitant]
     Active Substance: TEPRENONE
     Indication: PRODUCT USED FOR UNKNOWN INDICATION
     Dosage: 1 DOSAGE FORM, Q8H
     Route: 048
     Dates: start: 20201013
  3. OPDIVO [Suspect]
     Active Substance: NIVOLUMAB
     Indication: OESOPHAGEAL CARCINOMA
     Dosage: 240 MG
     Route: 041
     Dates: start: 20200715, end: 20200909
  4. METHYLPREDNISOLONE NA SUCCINATE [Suspect]
     Active Substance: METHYLPREDNISOLONE SODIUM SUCCINATE
     Indication: PRODUCT USED FOR UNKNOWN INDICATION
     Dosage: 80 MILLIGRAM
     Route: 065
     Dates: start: 20200924, end: 20200926
  5. METHYLPREDNISOLONE NA SUCCINATE [Suspect]
     Active Substance: METHYLPREDNISOLONE SODIUM SUCCINATE
     Dosage: 40 MILLIGRAM
     Route: 065
     Dates: start: 20200927, end: 20200928
  6. METHYLPREDNISOLONE NA SUCCINATE [Suspect]
     Active Substance: METHYLPREDNISOLONE SODIUM SUCCINATE
     Dosage: 20 MILLIGRAM
     Route: 065
     Dates: start: 20200929, end: 20200930
  7. MIDAZOLAM. [Concomitant]
     Active Substance: MIDAZOLAM
     Indication: PRODUCT USED FOR UNKNOWN INDICATION
     Dosage: 6 MILLIGRAM
     Route: 065
     Dates: start: 20201001, end: 20201001

REACTIONS (9)
  - Pneumonia [Unknown]
  - Mania [Unknown]
  - Vasculitis [Unknown]
  - Atelectasis [Unknown]
  - C-reactive protein increased [Unknown]
  - Autoimmune endocrine disorder [Unknown]
  - Malaise [Unknown]
  - Aortitis [Recovering/Resolving]
  - Pleural effusion [Unknown]

NARRATIVE: CASE EVENT DATE: 20200909
